FAERS Safety Report 24120669 (Version 1)
Quarter: 2024Q3

REPORT INFORMATION
  Report Type: Other
  Country: US (occurrence: US)
  Receive Date: 20240722
  Receipt Date: 20240722
  Transmission Date: 20241017
  Serious: Yes (Hospitalization, Disabling)
  Sender: B BRAUN
  Company Number: US-B.Braun Medical Inc.-2159332

PATIENT
  Age: 38 Year
  Sex: Female

DRUGS (3)
  1. BUPIVACAINE HYDROCHLORIDE [Suspect]
     Active Substance: BUPIVACAINE HYDROCHLORIDE
     Indication: Spinal anaesthesia
  2. FENTANYL [Suspect]
     Active Substance: FENTANYL\FENTANYL CITRATE
  3. MORPHINE [Suspect]
     Active Substance: MORPHINE

REACTIONS (3)
  - Anterior spinal artery syndrome [Not Recovered/Not Resolved]
  - Maternal exposure during pregnancy [Not Recovered/Not Resolved]
  - Spinal cord infarction [Not Recovered/Not Resolved]
